FAERS Safety Report 7481109-5 (Version None)
Quarter: 2011Q2

REPORT INFORMATION
  Report Type: 
  Country: None (occurrence: None)
  Receive Date: 20110516
  Receipt Date: 20100603
  Transmission Date: 20111010
  Serious: No
  Sender: FDA-Public Use
  Company Number: US-AMGEN-TCS411119

PATIENT
  Age: 76 Year
  Sex: Female

DRUGS (2)
  1. ENBREL [Suspect]
     Indication: RHEUMATOID ARTHRITIS
     Dosage: 50 MG, QWK
     Route: 058
     Dates: start: 20060601
  2. UNSPECIFIED ANTIBIOTIC [Concomitant]
     Dosage: UNK UNK, UNK
     Dates: start: 20100401

REACTIONS (2)
  - NECK PAIN [None]
  - DENTAL IMPLANTATION [None]
